FAERS Safety Report 5379038-6 (Version None)
Quarter: 2007Q3

REPORT INFORMATION
  Report Type: 
  Country: None (occurrence: None)
  Receive Date: 20070705
  Receipt Date: 20070703
  Transmission Date: 20080115
  Serious: Yes (Hospitalization)
  Sender: FDA-Public Use
  Company Number: US-BRISTOL-MYERS SQUIBB COMPANY-13827225

PATIENT
  Age: 44 Year
  Sex: Female

DRUGS (4)
  1. ABATACEPT [Suspect]
     Indication: RHEUMATOID ARTHRITIS
     Route: 042
     Dates: start: 20030512
  2. LEVOTHROID [Concomitant]
     Dates: start: 20040715
  3. LOVASTATIN [Concomitant]
     Dates: start: 20070112
  4. AMITRIPTYLINE HCL [Concomitant]
     Dates: start: 20030902

REACTIONS (1)
  - APPENDICITIS [None]
